FAERS Safety Report 9116872 (Version 1)
Quarter: 2013Q1

REPORT INFORMATION
  Report Type: Spontaneous
  Country: AU (occurrence: AU)
  Receive Date: 20130225
  Receipt Date: 20130225
  Transmission Date: 20140127
  Serious: Yes (Other)
  Sender: FDA-Public Use
  Company Number: PHHY2013AU017620

PATIENT
  Sex: Male

DRUGS (7)
  1. VOLTAREN [Suspect]
  2. RITALIN [Suspect]
  3. NEXIUM [Suspect]
  4. RHINOCORT [Suspect]
  5. HYDROCORTISONE [Suspect]
  6. TRITACE [Suspect]
  7. VIAGRA [Suspect]

REACTIONS (1)
  - Haematuria [Unknown]
